FAERS Safety Report 10305988 (Version 1)
Quarter: 2014Q3

REPORT INFORMATION
  Report Type: Spontaneous
  Country: US (occurrence: None)
  Receive Date: 20140714
  Receipt Date: 20140714
  Transmission Date: 20150326
  Serious: Yes (Hospitalization)
  Sender: FDA-Public Use
  Company Number: None

PATIENT
  Age: 31 Year
  Sex: Male
  Weight: 91.17 kg

DRUGS (1)
  1. CLARITIN [Suspect]
     Active Substance: LORATADINE
     Indication: SEASONAL ALLERGY
     Dosage: 1 PILL ONCE DAILY TAKEN BY MOUTH
     Route: 048
     Dates: start: 20140501, end: 20140706

REACTIONS (13)
  - Vertigo [None]
  - Cold sweat [None]
  - Peripheral coldness [None]
  - Nasal congestion [None]
  - Feeling hot [None]
  - Muscle spasms [None]
  - Dizziness [None]
  - Sneezing [None]
  - Meningitis viral [None]
  - Rash [None]
  - Pruritus [None]
  - Stress [None]
  - Dehydration [None]

NARRATIVE: CASE EVENT DATE: 20140706
